FAERS Safety Report 7436968-9 (Version None)
Quarter: 2011Q2

REPORT INFORMATION
  Report Type: 
  Country: None (occurrence: None)
  Receive Date: 20110426
  Receipt Date: 20110425
  Transmission Date: 20111010
  Serious: Yes (Death)
  Sender: FDA-Public Use
  Company Number: US-ROXANE LABORATORIES, INC.-2011-RO-00136RO

PATIENT
  Sex: Female
  Weight: 50 kg

DRUGS (2)
  1. METHADONE [Suspect]
  2. FENTANYL [Suspect]
     Route: 062

REACTIONS (3)
  - INTENTIONAL DRUG MISUSE [None]
  - INCORRECT ROUTE OF DRUG ADMINISTRATION [None]
  - TOXICITY TO VARIOUS AGENTS [None]
